FAERS Safety Report 5358746-7 (Version None)
Quarter: 2007Q2

REPORT INFORMATION
  Report Type: 
  Country: None (occurrence: None)
  Receive Date: 20070615
  Receipt Date: 20070605
  Transmission Date: 20071010
  Serious: Yes (Hospitalization, Other)
  Sender: FDA-Public Use
  Company Number: US-JNJFOC-20070601369

PATIENT
  Age: 79 Year
  Sex: Male

DRUGS (2)
  1. REMICADE [Suspect]
     Indication: COLITIS ULCERATIVE
     Dosage: 1ST DOSE
     Route: 042
  2. STEROIDS [Concomitant]
     Indication: CROHN'S DISEASE

REACTIONS (1)
  - ATRIOVENTRICULAR BLOCK [None]
